FAERS Safety Report 16929749 (Version 1)
Quarter: 2019Q4

REPORT INFORMATION
  Report Type: Spontaneous
  Country: US (occurrence: US)
  Receive Date: 20191017
  Receipt Date: 20191017
  Transmission Date: 20200122
  Serious: Yes (Other)
  Sender: FDA-Public Use
  Company Number: US-PFIZER INC-2019444706

PATIENT
  Age: 17 Year
  Sex: Female
  Weight: 47.62 kg

DRUGS (2)
  1. DEPO-PROVERA [Suspect]
     Active Substance: MEDROXYPROGESTERONE ACETATE
     Dosage: UNK
     Route: 042
     Dates: start: 20190830
  2. ENTYVIO [Suspect]
     Active Substance: VEDOLIZUMAB
     Indication: CROHN^S DISEASE
     Dosage: UNK [EVERY EIGHT WEEKS]
     Route: 042
     Dates: start: 201612

REACTIONS (6)
  - Incorrect route of product administration [Unknown]
  - Diarrhoea [Recovered/Resolved]
  - Faecal calprotectin increased [Unknown]
  - Vomiting projectile [Recovered/Resolved]
  - Off label use [Unknown]
  - Clostridium difficile infection [Unknown]

NARRATIVE: CASE EVENT DATE: 2019
